FAERS Safety Report 10288799 (Version 2)
Quarter: 2014Q3

REPORT INFORMATION
  Report Type: Spontaneous
  Country: US (occurrence: US)
  Receive Date: 20140709
  Receipt Date: 20140709
  Transmission Date: 20150326
  Serious: No
  Sender: FDA-Public Use
  Company Number: US-GILEAD-2013-0084220

PATIENT
  Age: 62 Year
  Sex: Female

DRUGS (5)
  1. LETAIRIS [Suspect]
     Active Substance: AMBRISENTAN
     Indication: PULMONARY HYPERTENSION
     Dosage: UNK
  2. LETAIRIS [Suspect]
     Active Substance: AMBRISENTAN
     Indication: SCLERODERMA
  3. LETAIRIS [Suspect]
     Active Substance: AMBRISENTAN
     Indication: COR PULMONALE CHRONIC
     Dosage: 2.5 MG, QD
     Dates: start: 20130425, end: 20130923
  4. REMODULIN [Concomitant]
     Active Substance: TREPROSTINIL
     Indication: COR PULMONALE CHRONIC
     Dates: start: 20121220
  5. ADCIRCA [Concomitant]
     Active Substance: TADALAFIL
     Indication: COR PULMONALE CHRONIC
     Dates: start: 20111208

REACTIONS (2)
  - Sinus congestion [Recovered/Resolved]
  - Nasal congestion [Recovered/Resolved]

NARRATIVE: CASE EVENT DATE: 20130425
